FAERS Safety Report 5755643-X (Version None)
Quarter: 2008Q2

REPORT INFORMATION
  Report Type: 
  Country: None (occurrence: None)
  Receive Date: 20080602
  Receipt Date: 20080519
  Transmission Date: 20081010
  Serious: Yes (Hospitalization, Other)
  Sender: FDA-Public Use
  Company Number: MX-ROCHE-565486

PATIENT
  Sex: Female
  Weight: 85 kg

DRUGS (5)
  1. XELODA [Suspect]
     Indication: BREAST CANCER
     Route: 048
     Dates: start: 20070101
  2. TITRACE [Concomitant]
     Dosage: DRUG: TITRACE 2.5
  3. ALDACTONE [Concomitant]
     Dates: end: 20080510
  4. 1 CONCOMITANT DRUG [Concomitant]
     Indication: SUPRAVENTRICULAR TACHYCARDIA
     Dosage: DRUG: DISQUETT
  5. VIRLIX [Concomitant]

REACTIONS (6)
  - BLOOD CREATININE INCREASED [None]
  - BLOOD UREA INCREASED [None]
  - BLOOD URIC ACID INCREASED [None]
  - FEMUR FRACTURE [None]
  - HYPERCALCAEMIA [None]
  - HYPERKALAEMIA [None]
